FAERS Safety Report 21603652 (Version 1)
Quarter: 2022Q4

REPORT INFORMATION
  Report Type: Spontaneous
  Country: US (occurrence: None)
  Receive Date: 20221116
  Receipt Date: 20221116
  Transmission Date: 20230112
  Serious: Yes (Hospitalization)
  Sender: FDA-Public Use
  Company Number: None

PATIENT
  Age: 78 Year
  Sex: Female
  Weight: 63.5 kg

DRUGS (10)
  1. IBRANCE [Suspect]
     Active Substance: PALBOCICLIB
     Indication: Breast cancer female
     Dosage: OTHER FREQUENCY : QDX21D THEN 7D OFF;?
     Route: 048
     Dates: start: 20220609, end: 20221003
  2. atorvastatin 80mg qd [Concomitant]
  3. citalopram 20mg qd [Concomitant]
  4. donepezil 5mg bid [Concomitant]
  5. HCTZ-Triamterene 25mg/37.5 qd [Concomitant]
  6. letrozole 2.5mg qd [Concomitant]
  7. meclizine 25mg tid prn [Concomitant]
  8. mirtazapine 7.5mg qd [Concomitant]
  9. pantoprazole 40mg qd [Concomitant]
  10. vitamin d3 50,000 IU qwk [Concomitant]

REACTIONS (5)
  - COVID-19 [None]
  - Ill-defined disorder [None]
  - Bacteraemia [None]
  - Pneumonia [None]
  - Interstitial lung disease [None]

NARRATIVE: CASE EVENT DATE: 20221114
